FAERS Safety Report 16816471 (Version 1)
Quarter: 2019Q3

REPORT INFORMATION
  Report Type: Spontaneous
  Country: CA (occurrence: CA)
  Receive Date: 20190917
  Receipt Date: 20190917
  Transmission Date: 20191005
  Serious: No
  Sender: FDA-Public Use
  Company Number: CA-RECKITT BENCKISER HEALTHCARE INT LIMITED-RB-84148-2019

PATIENT
  Age: 83 Year
  Sex: Female

DRUGS (1)
  1. MUCINEX MAXIMUM STRENGTH [Suspect]
     Active Substance: GUAIFENESIN
     Indication: PRODUCT USED FOR UNKNOWN INDICATION
     Dosage: ONE TABLET ON 06-APR-2019 AND ANOTHER ON 07-APR-2019
     Route: 065
     Dates: start: 20190406, end: 20190407

REACTIONS (1)
  - Wheezing [Recovered/Resolved]
